FAERS Safety Report 7634694-4 (Version None)
Quarter: 2011Q3

REPORT INFORMATION
  Report Type: 
  Country: None (occurrence: None)
  Receive Date: 20110725
  Receipt Date: 20110127
  Transmission Date: 20111222
  Serious: Yes (Hospitalization, Other)
  Sender: FDA-Public Use
  Company Number: US-BAYER-201023252NA

PATIENT
  Age: 26 Year
  Sex: Female
  Weight: 49 kg

DRUGS (7)
  1. CIPROFLOXACIN [Concomitant]
  2. VICODIN [Concomitant]
  3. GARDASIL [Concomitant]
     Dosage: UNK
     Dates: start: 20070403
  4. YASMIN [Suspect]
     Indication: CONTRACEPTION
     Dosage: UNK UNK, UNK
     Route: 048
     Dates: start: 20060101, end: 20080101
  5. YASMIN [Suspect]
     Indication: PREMENSTRUAL SYNDROME
  6. IBUPROFEN [Concomitant]
  7. GARDASIL [Concomitant]
     Dosage: UNK
     Dates: start: 20070205

REACTIONS (4)
  - MOOD SWINGS [None]
  - GALLBLADDER INJURY [None]
  - CHOLECYSTITIS [None]
  - MENTAL DISORDER [None]
